FAERS Safety Report 23284212 (Version 1)
Quarter: 2023Q4

REPORT INFORMATION
  Report Type: Report from Study
  Country: US (occurrence: US)
  Receive Date: 20231211
  Receipt Date: 20231211
  Transmission Date: 20240110
  Serious: No
  Sender: FDA-Public Use
  Company Number: US-ALXN-A202309504

PATIENT
  Age: 52 Year
  Sex: Male

DRUGS (2)
  1. STRENSIQ [Suspect]
     Active Substance: ASFOTASE ALFA
     Indication: Hypophosphatasia
     Dosage: 190 MG, TIW
     Route: 058
     Dates: start: 20230719
  2. STELARA [Concomitant]
     Active Substance: USTEKINUMAB
     Indication: Product used for unknown indication
     Dosage: UNK
     Route: 065

REACTIONS (8)
  - Anxiety [Recovered/Resolved]
  - Underdose [Unknown]
  - Injection site erythema [Recovering/Resolving]
  - Injection site mass [Recovered/Resolved]
  - Injection site warmth [Recovered/Resolved]
  - Injection site pain [Recovered/Resolved]
  - Injection site swelling [Recovering/Resolving]
  - Injection site reaction [Recovered/Resolved]

NARRATIVE: CASE EVENT DATE: 20230719
